FAERS Safety Report 6010583-6 (Version None)
Quarter: 2008Q4

REPORT INFORMATION
  Report Type: 
  Country: None (occurrence: None)
  Receive Date: 20081218
  Receipt Date: 20081209
  Transmission Date: 20090506
  Serious: Yes (Other)
  Sender: FDA-Public Use
  Company Number: US-BIOGENIDEC-2008BI024051

PATIENT
  Age: 61 Year
  Sex: Female
  Weight: 73 kg

DRUGS (19)
  1. TYSABRI [Suspect]
     Indication: MULTIPLE SCLEROSIS
     Route: 042
     Dates: start: 20071220
  2. PLAVIX [Concomitant]
     Indication: CEREBROVASCULAR ACCIDENT PROPHYLAXIS
  3. TOPROL-XL [Concomitant]
  4. SPIRONOLACTONE [Concomitant]
  5. PROVIGIL [Concomitant]
  6. TRILEPTAL [Concomitant]
  7. ULTRAM ER [Concomitant]
  8. PROTONIX [Concomitant]
  9. CARDIAZEM [Concomitant]
  10. ZOCOR [Concomitant]
  11. CALTRATE +D [Concomitant]
  12. STOOL SOFTENER [Concomitant]
  13. CYMBALTA [Concomitant]
  14. XYZAL [Concomitant]
  15. CLONAZEPAM [Concomitant]
  16. POTASSIUM CHLORIDE [Concomitant]
  17. OSTEOPOROSIS INFUSION [Concomitant]
  18. FENTANYL TRANSDERMAL SYSTEM [Concomitant]
     Route: 062
  19. PROVENTIL [Concomitant]
     Route: 055

REACTIONS (1)
  - CELLULITIS [None]
